FAERS Safety Report 4978429-2 (Version None)
Quarter: 2006Q1

REPORT INFORMATION
  Report Type: 
  Country: None (occurrence: None)
  Receive Date: 20060216
  Receipt Date: 20051118
  Transmission Date: 20060701
  Serious: No
  Sender: FDA-Public Use
  Company Number: TPA2005A01524

PATIENT
  Age: 75 Year
  Sex: Male
  Weight: 58.9676 kg

DRUGS (9)
  1. ROZEREM [Suspect]
     Indication: INSOMNIA
     Dosage: 8 MG, HS, PER ORAL
     Route: 048
     Dates: start: 20051116, end: 20051117
  2. ARICEPT [Concomitant]
  3. LEVSIN (HYOSCYAMINE SULFATE) [Concomitant]
  4. BACTRIM [Concomitant]
  5. CHLORDIAZEPOXIDE/CLINDINIUM (LIBRAX / OLD FORM/) [Concomitant]
  6. PAXIL [Concomitant]
  7. TERAZOSIN (TERAZOSIN) [Concomitant]
  8. AMBIEN [Concomitant]
  9. MELATONIN (MELATONIN) [Concomitant]

REACTIONS (3)
  - DIZZINESS [None]
  - MELAENA [None]
  - POOR QUALITY SLEEP [None]
